FAERS Safety Report 10215791 (Version 2)
Quarter: 2014Q2

REPORT INFORMATION
  Report Type: Report from Study
  Country: US (occurrence: US)
  Receive Date: 20140604
  Receipt Date: 20140604
  Transmission Date: 20141212
  Serious: No
  Sender: FDA-Public Use
  Company Number: PHEH2013US026407

PATIENT
  Sex: Male

DRUGS (6)
  1. TASIGNA [Suspect]
     Indication: CHRONIC MYELOID LEUKAEMIA
     Dosage: 300 MG, BID
     Route: 048
     Dates: start: 20131121
  2. ADVIL [Concomitant]
  3. DOXEPIN HCL [Concomitant]
  4. POTASSIUM BITARTRATE [Concomitant]
  5. SIMVASTATIN [Concomitant]
  6. LASIX [Concomitant]

REACTIONS (2)
  - Muscle spasms [Recovered/Resolved]
  - Blood bilirubin increased [Unknown]
